FAERS Safety Report 21636433 (Version 4)
Quarter: 2023Q4

REPORT INFORMATION
  Report Type: Report from Study
  Country: CA (occurrence: CA)
  Receive Date: 20221124
  Receipt Date: 20231003
  Transmission Date: 20240110
  Serious: Yes (Other)
  Sender: FDA-Public Use
  Company Number: CA-JNJFOC-20221124056

PATIENT
  Age: 21 Year
  Sex: Female
  Weight: 81 kg

DRUGS (1)
  1. REMICADE [Suspect]
     Active Substance: INFLIXIMAB
     Indication: Colitis ulcerative
     Dosage: THERAPY START DATE ALSO REPORTED AS 19-DEC-2015?EXPIRY DATE- NOV-2025
     Route: 042
     Dates: start: 20111018

REACTIONS (6)
  - Colitis ulcerative [Unknown]
  - Labyrinthitis [Recovered/Resolved]
  - Otitis media [Recovered/Resolved]
  - COVID-19 [Not Recovered/Not Resolved]
  - Inappropriate schedule of product administration [Unknown]
  - Off label use [Unknown]

NARRATIVE: CASE EVENT DATE: 20111018
